FAERS Safety Report 23261966 (Version 1)
Quarter: 2023Q4

REPORT INFORMATION
  Report Type: Spontaneous
  Country: CN (occurrence: CN)
  Receive Date: 20231205
  Receipt Date: 20231205
  Transmission Date: 20240109
  Serious: Yes (Other)
  Sender: FDA-Public Use
  Company Number: None

PATIENT
  Age: 19 Year
  Sex: Male
  Weight: 105 kg

DRUGS (5)
  1. OLANZAPINE [Suspect]
     Active Substance: OLANZAPINE
     Indication: Schizophrenia
     Dosage: 5MG,QD
     Dates: start: 20231030, end: 20231107
  2. AMISULPRIDE [Suspect]
     Active Substance: AMISULPRIDE
     Indication: Schizophrenia
     Dosage: 0.4G,BID
     Dates: start: 20231028, end: 20231107
  3. LORAZEPAM [Concomitant]
     Active Substance: LORAZEPAM
     Indication: Sleep disorder
     Dosage: 1MG,QD
     Dates: start: 20231027, end: 20231107
  4. PAROXETINE HYDROCHLORIDE [Concomitant]
     Active Substance: PAROXETINE HYDROCHLORIDE\PAROXETINE HYDROCHLORIDE ANHYDROUS
     Indication: Schizophrenia
     Dosage: 10MG,QD
     Dates: start: 20231024, end: 20231030
  5. ZIPRASIDONE HYDROCHLORIDE [Concomitant]
     Active Substance: ZIPRASIDONE HYDROCHLORIDE
     Indication: Schizophrenia
     Dosage: 40MG,BID
     Dates: start: 20231024, end: 20231030

REACTIONS (1)
  - Atrial fibrillation [Recovering/Resolving]

NARRATIVE: CASE EVENT DATE: 20231101
